FAERS Safety Report 6199160-4 (Version None)
Quarter: 2009Q2

REPORT INFORMATION
  Report Type: 
  Country: None (occurrence: None)
  Receive Date: 20090522
  Receipt Date: 20090423
  Transmission Date: 20091009
  Serious: No
  Sender: FDA-Public Use
  Company Number: A0770205A

PATIENT
  Age: 48 Year
  Sex: Female

DRUGS (3)
  1. VERAMYST [Suspect]
     Indication: NASAL CONGESTION
     Dosage: 4SPR PER DAY
     Route: 045
     Dates: start: 20090220, end: 20090223
  2. ADVAIR HFA [Concomitant]
  3. STEROIDS [Concomitant]

REACTIONS (5)
  - COUGH [None]
  - DYSPHONIA [None]
  - PAIN [None]
  - THIRST [None]
  - THROAT IRRITATION [None]
